FAERS Safety Report 13414090 (Version 1)
Quarter: 2017Q2

REPORT INFORMATION
  Report Type: Spontaneous
  Country: US (occurrence: US)
  Receive Date: 20170407
  Receipt Date: 20170407
  Transmission Date: 20170830
  Serious: Yes (Other)
  Sender: FDA-Public Use
  Company Number: None

PATIENT
  Age: 75 Year
  Sex: Female
  Weight: 73.48 kg

DRUGS (20)
  1. TRIAMCINOLONE [Concomitant]
     Active Substance: TRIAMCINOLONE
  2. DELZICOL [Concomitant]
     Active Substance: MESALAMINE
  3. ESOMEPRAZOLE [Concomitant]
     Active Substance: ESOMEPRAZOLE
  4. PREDNISONE. [Concomitant]
     Active Substance: PREDNISONE
  5. DILTIAZEM HCL (60MG TABS) (HYDROCHLORIDE TABLETS USP [Suspect]
     Active Substance: DILTIAZEM HYDROCHLORIDE
     Indication: CARDIAC DISORDER
     Dosage: FREQUENCY - 1 TAB BY MOUTH EVERY 8 HOURS
     Route: 048
     Dates: start: 20170218, end: 20170302
  6. LESCOL XL [Concomitant]
     Active Substance: FLUVASTATIN SODIUM
  7. ALBUTEROL HFA [Concomitant]
     Active Substance: ALBUTEROL SULFATE
  8. ALPRAZOLAM. [Concomitant]
     Active Substance: ALPRAZOLAM
  9. CHOLECALCIFEROL [Concomitant]
     Active Substance: CHOLECALCIFEROL
  10. LOSARTAN. [Concomitant]
     Active Substance: LOSARTAN
  11. IPRATROPIUM [Concomitant]
     Active Substance: IPRATROPIUM
  12. POTASSIUM CHLORIDE. [Concomitant]
     Active Substance: POTASSIUM CHLORIDE
  13. VITAMIN B-12 CR [Concomitant]
  14. DIPHENOXYLATE-ATROPINE [Concomitant]
  15. FLOVENT HFA [Concomitant]
     Active Substance: FLUTICASONE PROPIONATE
  16. RECLAST [Concomitant]
     Active Substance: ZOLEDRONIC ACID
  17. BUDESONIDE. [Concomitant]
     Active Substance: BUDESONIDE
  18. CETIRIZINE [Concomitant]
     Active Substance: CETIRIZINE HYDROCHLORIDE
  19. EPINEPHRINE. [Concomitant]
     Active Substance: EPINEPHRINE
  20. EPIPEN [Concomitant]
     Active Substance: EPINEPHRINE

REACTIONS (2)
  - Rash pruritic [None]
  - Rash generalised [None]
